FAERS Safety Report 14141369 (Version 1)
Quarter: 2017Q4

REPORT INFORMATION
  Report Type: Spontaneous
  Country: FR (occurrence: FR)
  Receive Date: 20171030
  Receipt Date: 20171030
  Transmission Date: 20180321
  Serious: Yes (Hospitalization)
  Sender: FDA-Public Use
  Company Number: FR-PFIZER INC-2017461008

PATIENT
  Age: 87 Year
  Sex: Female

DRUGS (14)
  1. CETIRIZINE [Concomitant]
     Active Substance: CETIRIZINE HYDROCHLORIDE
     Dosage: UNK
  2. ORACILLINE /00001801/ [Suspect]
     Active Substance: PENICILLIN V
     Dosage: UNK
     Route: 065
     Dates: start: 20170620, end: 20170628
  3. LANSOPRAZOLE. [Suspect]
     Active Substance: LANSOPRAZOLE
     Dosage: UNK
     Route: 065
     Dates: start: 20170615, end: 20170630
  4. MYCOSTER /00619301/ [Concomitant]
     Active Substance: CICLOPIROX\CICLOPIROX OLAMINE
     Dosage: UNK
  5. FLECTOR [Suspect]
     Active Substance: DICLOFENAC EPOLAMINE
     Dosage: UNK
     Route: 065
     Dates: start: 20170615, end: 20170622
  6. CERIS [Concomitant]
     Active Substance: TROSPIUM CHLORIDE
     Dosage: UNK
  7. LASILIX /00032601/ [Concomitant]
     Active Substance: FUROSEMIDE
     Dosage: UNK
  8. TRIMEBUTINE [Concomitant]
     Active Substance: TRIMEBUTINE
     Dosage: UNK
  9. KALEORID [Concomitant]
     Active Substance: POTASSIUM CHLORIDE
     Dosage: UNK
  10. ZALDIAR [Concomitant]
     Active Substance: ACETAMINOPHEN\TRAMADOL HYDROCHLORIDE
     Dosage: UNK
  11. COLCHIMAX /00728901/ [Concomitant]
     Active Substance: COLCHICINE\DICYCLOMINE HYDROCHLORIDE
     Dosage: UNK
  12. FLUVASTATINE /01224501/ [Concomitant]
     Dosage: UNK
  13. ALLOPURINOL. [Concomitant]
     Active Substance: ALLOPURINOL
     Dosage: UNK
  14. COTAREG [Concomitant]
     Active Substance: HYDROCHLOROTHIAZIDE\VALSARTAN
     Dosage: UNK

REACTIONS (5)
  - Malaise [Unknown]
  - Rash morbilliform [Recovered/Resolved]
  - Pruritus [Unknown]
  - Hypersensitivity [Unknown]
  - Hypotension [Unknown]

NARRATIVE: CASE EVENT DATE: 20170808
